FAERS Safety Report 10783916 (Version 4)
Quarter: 2015Q1

REPORT INFORMATION
  Report Type: Report from Study
  Country: CA (occurrence: CA)
  Receive Date: 20150210
  Receipt Date: 20150311
  Transmission Date: 20150721
  Serious: Yes (Other)
  Sender: FDA-Public Use
  Company Number: CA-ROCHE-1369757

PATIENT
  Age: 75 Year
  Sex: Male

DRUGS (20)
  1. VITAMIN D3 [Concomitant]
     Active Substance: CHOLECALCIFEROL
  2. DICLOFENAC [Concomitant]
     Active Substance: DICLOFENAC
     Dosage: 5%
     Route: 065
  3. NITRO PATCH [Concomitant]
  4. LOSEC [Concomitant]
     Active Substance: OMEPRAZOLE
  5. EFFEXOR [Concomitant]
     Active Substance: VENLAFAXINE HYDROCHLORIDE
  6. TYLENOL [Concomitant]
     Active Substance: ACETAMINOPHEN
     Route: 048
     Dates: start: 20150219
  7. PREDNISONE. [Concomitant]
     Active Substance: PREDNISONE
  8. RAMIPRIL. [Concomitant]
     Active Substance: RAMIPRIL
  9. NASOCORT [Concomitant]
     Active Substance: TRIAMCINOLONE ACETONIDE
  10. ACTEMRA [Suspect]
     Active Substance: TOCILIZUMAB
     Indication: RHEUMATOID ARTHRITIS
     Route: 042
     Dates: start: 20140305, end: 20140707
  11. BENADRYL + DYCLONE MOUTHRINSE [Concomitant]
     Route: 048
     Dates: start: 20150219
  12. TOLOXIN (CANADA) [Concomitant]
  13. XARELTO [Suspect]
     Active Substance: RIVAROXABAN
     Indication: PRODUCT USED FOR UNKNOWN INDICATION
     Route: 065
  14. CARVEDILOL. [Concomitant]
     Active Substance: CARVEDILOL
  15. SOLU-MEDROL [Concomitant]
     Active Substance: METHYLPREDNISOLONE SODIUM SUCCINATE
     Route: 042
     Dates: start: 20150219
  16. PIROXICAM. [Concomitant]
     Active Substance: PIROXICAM
     Dosage: 1%
     Route: 061
  17. DIGOXIN. [Concomitant]
     Active Substance: DIGOXIN
  18. FOLIC ACID. [Concomitant]
     Active Substance: FOLIC ACID
  19. LEVOTHYROXINE [Concomitant]
     Active Substance: LEVOTHYROXINE
  20. RITUXAN [Suspect]
     Active Substance: RITUXIMAB
     Indication: RHEUMATOID ARTHRITIS
     Route: 042
     Dates: start: 20150219

REACTIONS (10)
  - Drug effect decreased [Unknown]
  - Nausea [Not Recovered/Not Resolved]
  - Epistaxis [Not Recovered/Not Resolved]
  - Abdominal pain upper [Recovered/Resolved]
  - Peripheral swelling [Not Recovered/Not Resolved]
  - Arthralgia [Not Recovered/Not Resolved]
  - Joint swelling [Not Recovered/Not Resolved]
  - Upper respiratory tract infection [Unknown]
  - Infusion related reaction [Unknown]
  - No therapeutic response [Unknown]

NARRATIVE: CASE EVENT DATE: 20140707
